FAERS Safety Report 7831260-2 (Version None)
Quarter: 2011Q4

REPORT INFORMATION
  Report Type: 
  Country: None (occurrence: None)
  Receive Date: 20111021
  Receipt Date: 20111007
  Transmission Date: 20120403
  Serious: Yes (Death, Hospitalization)
  Sender: FDA-Public Use
  Company Number: DE-ROCHE-709837

PATIENT
  Age: 67 Year
  Sex: Male
  Weight: 83 kg

DRUGS (18)
  1. CYCLOPHOSPHAMIDE [Suspect]
     Indication: CHRONIC LYMPHOCYTIC LEUKAEMIA
     Dosage: LATS DOSE PRIOR TO SAE: 22/JUL/2010, DOSE: 250MG/M2, DAYS 1-3 FROM PROTOCOL.
     Route: 042
  2. ALLOPURINOL [Concomitant]
  3. ATORVASTATIN CALCIUM [Concomitant]
  4. NEUPOGEN [Concomitant]
  5. ATORVASTATIN [Concomitant]
  6. FLUDARABINE PHOSPHATE [Suspect]
     Indication: CHRONIC LYMPHOCYTIC LEUKAEMIA
     Dosage: LAST DOSE PRIOR TO SAE: 22/JUL/2010, DOSE: 25MG/M2 ON DAYS 1-3 FROM PROTOCOL.
     Route: 042
  7. TREOSULFAN [Concomitant]
     Dates: start: 20110726, end: 20110728
  8. MABTHERA [Suspect]
     Dosage: LAST DOSE PRIOR TO SAE: 19/JUL/2010
  9. FLUDARABINE PHOSPHATE [Concomitant]
  10. AGGRENOX [Concomitant]
     Dosage: 200/25 MG
  11. FLUDARABINE PHOSPHATE [Suspect]
     Dates: start: 20110726, end: 20110730
  12. MABTHERA [Suspect]
     Indication: CHRONIC LYMPHOCYTIC LEUKAEMIA
     Route: 042
  13. ANTI-THYMOCYTE GLOBULIN NOS [Concomitant]
     Dates: start: 20110729, end: 20110801
  14. MEROPENEMUM [Concomitant]
     Dosage: DOSE: 3X1/G
     Dates: start: 20110815, end: 20110819
  15. VANCOMYCIN [Concomitant]
     Dosage: DOSE: 2X 1G
     Dates: start: 20110730, end: 20110819
  16. ACYCLOVIR [Concomitant]
     Dates: start: 20100506, end: 20100512
  17. PIPERACILLIN [Concomitant]
     Dosage: DOSE: 3X4/1 G
     Dates: start: 20110730, end: 20110815
  18. CANDESARTAN CILEXETIL [Concomitant]

REACTIONS (2)
  - ACUTE MYELOID LEUKAEMIA [None]
  - FEBRILE NEUTROPENIA [None]
